FAERS Safety Report 5328891-0 (Version None)
Quarter: 2007Q2

REPORT INFORMATION
  Report Type: 
  Country: None (occurrence: None)
  Receive Date: 20070518
  Receipt Date: 20070510
  Transmission Date: 20071010
  Serious: Yes (Other)
  Sender: FDA-Public Use
  Company Number: GB-ASTRAZENECA-2006GB01801

PATIENT
  Weight: 75 kg

DRUGS (2)
  1. ESOMEPRAZOLE MAGNESIUM [Suspect]
     Indication: HIATUS HERNIA
     Route: 048
     Dates: start: 20040101, end: 20060901
  2. ANTIBIOTICS [Concomitant]

REACTIONS (3)
  - MUSCLE ATROPHY [None]
  - NEUROPATHY PERIPHERAL [None]
  - PALPITATIONS [None]
